FAERS Safety Report 14699838 (Version 1)
Quarter: 2018Q1

REPORT INFORMATION
  Report Type: Spontaneous
  Country: SA (occurrence: SA)
  Receive Date: 20180330
  Receipt Date: 20180330
  Transmission Date: 20180509
  Serious: Yes (Other)
  Sender: FDA-Public Use
  Company Number: SA-SA-2018SA083256

PATIENT
  Age: 60 Year
  Sex: Male

DRUGS (5)
  1. RITUXIMAB. [Concomitant]
     Active Substance: RITUXIMAB
     Indication: CHRONIC LYMPHOCYTIC LEUKAEMIA STAGE 2
     Dosage: ON DAY 1
     Route: 065
     Dates: start: 201601, end: 20160727
  2. IMATINIB [Concomitant]
     Active Substance: IMATINIB
     Route: 065
  3. NILOTINIB [Concomitant]
     Active Substance: NILOTINIB
     Route: 048
  4. FLUDARABINE PHOSPHATE. [Suspect]
     Active Substance: FLUDARABINE PHOSPHATE
     Indication: CHRONIC LYMPHOCYTIC LEUKAEMIA STAGE 2
     Dosage: DAY 1-3
     Route: 065
     Dates: start: 201601, end: 20160727
  5. CYCLOPHOSPHAMIDE. [Concomitant]
     Active Substance: CYCLOPHOSPHAMIDE
     Indication: CHRONIC LYMPHOCYTIC LEUKAEMIA STAGE 2
     Dosage: ON DAYS 1-3
     Route: 065
     Dates: start: 201601, end: 20160727

REACTIONS (2)
  - Richter^s syndrome [Recovered/Resolved]
  - Diffuse large B-cell lymphoma [Recovered/Resolved]
